FAERS Safety Report 7245310-8 (Version None)
Quarter: 2011Q1

REPORT INFORMATION
  Report Type: 
  Country: None (occurrence: None)
  Receive Date: 20110126
  Receipt Date: 20110119
  Transmission Date: 20110831
  Serious: Yes (Hospitalization)
  Sender: FDA-Public Use
  Company Number: KR-ROCHE-749400

PATIENT
  Sex: Female

DRUGS (20)
  1. METHOTREXATE [Concomitant]
     Route: 048
     Dates: start: 20100909, end: 20101214
  2. CHLORPHENIRAMINE MALEATE [Concomitant]
     Route: 030
     Dates: start: 20091231, end: 20101203
  3. PRAVASTATIN SODIUM [Concomitant]
     Route: 048
     Dates: start: 20100326
  4. METHOTREXATE [Concomitant]
     Route: 048
     Dates: start: 20100803, end: 20100909
  5. BLINDED TOCILIZUMAB [Concomitant]
     Route: 042
     Dates: start: 20091231, end: 20100520
  6. CALCIUM GLUCONATE [Concomitant]
     Route: 048
     Dates: start: 20061211
  7. AMLODIPINE BESYLATE [Concomitant]
     Route: 048
     Dates: start: 20090921
  8. TOCILIZUMAB [Suspect]
     Indication: RHEUMATOID ARTHRITIS
     Route: 042
     Dates: start: 20100618, end: 20101203
  9. TALNIFLUMATE [Concomitant]
     Route: 048
     Dates: start: 20080122
  10. ARTEMISIA ASIATICA [Concomitant]
     Dosage: DRUG:ARTEMISIA ASIATICA EXT.
     Route: 048
     Dates: start: 20090622
  11. ERGOCALCIFEROL [Concomitant]
     Route: 048
     Dates: start: 20061211
  12. METHOTREXATE [Concomitant]
     Route: 048
     Dates: start: 20090406, end: 20100718
  13. METHYLPREDNISOLONE [Concomitant]
     Route: 048
     Dates: start: 20050124, end: 20100811
  14. FOLIC ACID [Concomitant]
     Route: 048
     Dates: start: 20030630
  15. EZETIMIBE [Concomitant]
     Route: 048
     Dates: start: 20100618, end: 20100715
  16. HYDROXYCHLOROQUINE [Concomitant]
     Route: 048
     Dates: start: 20090902, end: 20101215
  17. METHYLPREDNISOLONE [Concomitant]
     Route: 048
     Dates: start: 20100812
  18. CALCIUM LACTATE [Concomitant]
     Route: 048
     Dates: start: 20061211
  19. PRECIPITATED CALCIUM CARBONATE [Concomitant]
     Route: 048
     Dates: start: 20061211
  20. RANITIDINE HYDROCHLORIDE [Concomitant]
     Route: 048
     Dates: start: 20090718

REACTIONS (1)
  - LUNG ADENOCARCINOMA [None]
